FAERS Safety Report 24560129 (Version 2)
Quarter: 2024Q4

REPORT INFORMATION
  Report Type: Report from Study
  Country: US (occurrence: US)
  Receive Date: 20241029
  Receipt Date: 20241128
  Transmission Date: 20250114
  Serious: Yes (Death, Other)
  Sender: MERZ
  Company Number: US-MERZ PHARMACEUTICALS, LLC-ACO_178166_2024

PATIENT
  Age: 65 Year
  Sex: Male

DRUGS (2)
  1. INBRIJA [Suspect]
     Active Substance: LEVODOPA
     Indication: Parkinson^s disease
     Dosage: 2 DOSAGE FORM, PRN (UP TO 5 TIMES PER DAY)
     Dates: start: 20231202, end: 20240831
  2. INBRIJA [Suspect]
     Active Substance: LEVODOPA
     Indication: On and off phenomenon

REACTIONS (6)
  - Completed suicide [Fatal]
  - Psychotic disorder [Unknown]
  - Dysphonia [Unknown]
  - Depression [Unknown]
  - Hallucination, visual [Unknown]
  - Insomnia [Unknown]

NARRATIVE: CASE EVENT DATE: 20240831
